FAERS Safety Report 12661574 (Version 2)
Quarter: 2016Q3

REPORT INFORMATION
  Report Type: Spontaneous
  Country: US (occurrence: US)
  Receive Date: 20160817
  Receipt Date: 20160823
  Transmission Date: 20161109
  Serious: No
  Sender: FDA-Public Use
  Company Number: US-PFIZER INC-2016370091

PATIENT
  Age: 52 Year
  Sex: Female
  Weight: 58.96 kg

DRUGS (16)
  1. VIIBRYD [Concomitant]
     Active Substance: VILAZODONE HYDROCHLORIDE
     Dosage: UNK [TAKE HALF OF ONE VIIBRYD]
  2. LYRICA [Suspect]
     Active Substance: PREGABALIN
     Indication: NEUROPATHY PERIPHERAL
     Dosage: 100 MG, 2X/DAY
     Route: 048
     Dates: start: 20160317
  3. LYRICA [Suspect]
     Active Substance: PREGABALIN
     Indication: FIBROMYALGIA
     Dosage: 75 MG, 2X/DAY
     Route: 048
     Dates: start: 20160322
  4. VIIBRYD [Concomitant]
     Active Substance: VILAZODONE HYDROCHLORIDE
     Dosage: 40 MG, 1X/DAY [EVERY NIGHT]
  5. TRAZODONE HYDROCHLORIDE. [Concomitant]
     Active Substance: TRAZODONE HYDROCHLORIDE
     Indication: SLEEP DISORDER
     Dosage: 100 MG, 1X/DAY
     Route: 048
  6. TRAZODONE HYDROCHLORIDE. [Concomitant]
     Active Substance: TRAZODONE HYDROCHLORIDE
     Dosage: UNK (UNSURE OF DOSE AND TAKES 1-2 OF THEM)
  7. FERROUS SULFATE. [Concomitant]
     Active Substance: FERROUS SULFATE
     Dosage: 325 MG, 3X/DAY
     Route: 048
     Dates: start: 20160104
  8. SPRINTEC [Concomitant]
     Active Substance: ETHINYL ESTRADIOL\NORGESTIMATE
     Dosage: 1 DF, DAILY ((NORGESTIMATE- ETHINYLESTRADIOL (ORTHTO-CYCLEN (28)) 0.25-35 MG-MCG ORAL TABLET
     Route: 048
     Dates: start: 20151112
  9. ALBUTEROL. [Concomitant]
     Active Substance: ALBUTEROL
     Dosage: 2 MG, 2X/DAY
  10. VITAMIN C [Concomitant]
     Active Substance: ASCORBIC ACID
     Dosage: 500 MG, UNK
     Dates: start: 20160104
  11. ALBUTEROL. [Concomitant]
     Active Substance: ALBUTEROL
     Dosage: UNK, AS NEEDED (2 PUGGS Q 4-6 HRS PRN X30 DAYS)
     Route: 045
     Dates: start: 20130219
  12. CALTRATE 600+D [Concomitant]
     Dosage: UNK, 1X/DAY [(CALTRATE 600+D) 600-800 MG-UNIT ORAL TABLET]
     Route: 048
  13. LYRICA [Suspect]
     Active Substance: PREGABALIN
     Dosage: 100 MG, 3X/DAY (SOMETIMES 3 TIMES A DAY)
     Route: 048
  14. PROAIR HFA [Concomitant]
     Active Substance: ALBUTEROL SULFATE
     Indication: WHEEZING
     Dosage: 2 DF, AS NEEDED [2 PUFFS Q 4-6 HRS PRN]
     Route: 055
     Dates: start: 20160317
  15. ULTRAM [Concomitant]
     Active Substance: TRAMADOL HYDROCHLORIDE
     Dosage: 50 MG, UNK
     Route: 048
     Dates: start: 20130806
  16. VIIBRYD [Concomitant]
     Active Substance: VILAZODONE HYDROCHLORIDE
     Indication: DEPRESSION
     Dosage: 40 MG, DAILY (TAKE 1 PO QAM)
     Route: 048
     Dates: start: 20160317

REACTIONS (7)
  - Drug dose omission [Not Recovered/Not Resolved]
  - Abnormal behaviour [Unknown]
  - Pain [Not Recovered/Not Resolved]
  - Insomnia [Not Recovered/Not Resolved]
  - Intentional product misuse [Unknown]
  - Paraesthesia [Not Recovered/Not Resolved]
  - Burning sensation [Not Recovered/Not Resolved]

NARRATIVE: CASE EVENT DATE: 2016
